FAERS Safety Report 12760834 (Version 2)
Quarter: 2016Q4

REPORT INFORMATION
  Report Type: Spontaneous
  Country: US (occurrence: US)
  Receive Date: 20160919
  Receipt Date: 20161228
  Transmission Date: 20170207
  Serious: No
  Sender: FDA-Public Use
  Company Number: US-ASTRAZENECA-2016SE95960

PATIENT
  Age: 18774 Day
  Sex: Male
  Weight: 104.3 kg

DRUGS (4)
  1. BYDUREON [Suspect]
     Active Substance: EXENATIDE
     Indication: TYPE 2 DIABETES MELLITUS
     Route: 058
     Dates: start: 201607
  2. NOVOLOG [Concomitant]
     Active Substance: INSULIN ASPART
     Indication: DIABETES MELLITUS
     Dosage: 5 OR 6 UNITS BEFORE MEAL
     Route: 065
  3. LANTUS [Concomitant]
     Active Substance: INSULIN GLARGINE
     Indication: DIABETES MELLITUS
     Dosage: 20 UNITS IN MORNING AND 30 UNITS AT NIGHT
  4. NOVOLOG [Concomitant]
     Active Substance: INSULIN ASPART
     Indication: DIABETES MELLITUS
     Dosage: 20 UNITS BEFORE MEAL
     Route: 065
     Dates: start: 20160906

REACTIONS (4)
  - Hunger [Unknown]
  - Blood glucose increased [Unknown]
  - Underdose [Unknown]
  - Device leakage [Unknown]

NARRATIVE: CASE EVENT DATE: 20160906
